FAERS Safety Report 17754106 (Version 1)
Quarter: 2020Q2

REPORT INFORMATION
  Report Type: Spontaneous
  Country: GB (occurrence: GB)
  Receive Date: 20200506
  Receipt Date: 20200506
  Transmission Date: 20200714
  Serious: Yes (Other)
  Sender: FDA-Public Use
  Company Number: NVSC2020GB121508

PATIENT

DRUGS (2)
  1. AMOXICILLIN TRIHYDRATE [Suspect]
     Active Substance: AMOXICILLIN
     Indication: LOWER RESPIRATORY TRACT INFECTION
     Dosage: UNK
     Route: 065
  2. MEPOLIZUMAB [Suspect]
     Active Substance: MEPOLIZUMAB
     Indication: ASTHMA
     Dosage: 100 MG, Z (EVERY 4 WEEKS)
     Route: 042

REACTIONS (6)
  - Productive cough [Unknown]
  - Cough [Unknown]
  - Lower respiratory tract infection [Unknown]
  - Therapeutic product effect incomplete [Unknown]
  - Sputum discoloured [Unknown]
  - Wheezing [Unknown]
